FAERS Safety Report 4622724-3 (Version None)
Quarter: 2005Q1

REPORT INFORMATION
  Report Type: 
  Country: None (occurrence: None)
  Receive Date: 20050329
  Receipt Date: 20050329
  Transmission Date: 20050727
  Serious: Yes (Life-Threatening, Hospitalization)
  Sender: FDA-Public Use
  Company Number: None

PATIENT
  Age: 11 Year
  Sex: Male
  Weight: 41.2 kg

DRUGS (2)
  1. CISPLATIN [Suspect]
     Indication: PINEALOBLASTOMA
     Dates: start: 20050227, end: 20050301
  2. CYCLOPHOSPHAMIDE [Suspect]
     Indication: PINEALOBLASTOMA
     Dosage: 1280 MG   Q24H X 2 INTRAVENOUS
     Route: 042
     Dates: start: 20050227, end: 20050301

REACTIONS (5)
  - CAECITIS [None]
  - PANCYTOPENIA [None]
  - RENAL FAILURE ACUTE [None]
  - RESPIRATORY FAILURE [None]
  - SEPTIC SHOCK [None]
